FAERS Safety Report 8937814 (Version 1)
Quarter: 2012Q4

REPORT INFORMATION
  Report Type: Spontaneous
  Country: US (occurrence: None)
  Receive Date: 20121128
  Receipt Date: 20121128
  Transmission Date: 20130627
  Serious: Yes (Other)
  Sender: FDA-Public Use
  Company Number: None

PATIENT
  Age: 48 Year
  Sex: Female

DRUGS (1)
  1. ESCITALOPRAM [Suspect]
     Dosage: 1 tablet daily po
     Route: 048
     Dates: start: 20121001, end: 20121123

REACTIONS (3)
  - Product substitution issue [None]
  - Product quality issue [None]
  - Treatment failure [None]
